FAERS Safety Report 8054239-7 (Version None)
Quarter: 2012Q1

REPORT INFORMATION
  Report Type: 
  Country: None (occurrence: None)
  Receive Date: 20120118
  Receipt Date: 20120112
  Transmission Date: 20120608
  Serious: Yes (Other)
  Sender: FDA-Public Use
  Company Number: US-ASTRAZENECA-2010SE58065

PATIENT
  Age: 76 Year
  Sex: Male

DRUGS (1)
  1. ATACAND [Suspect]
     Route: 048

REACTIONS (5)
  - CATARACT [None]
  - LUNG DISORDER [None]
  - MALAISE [None]
  - DIABETES MELLITUS [None]
  - THYROID DISORDER [None]
